FAERS Safety Report 14853557 (Version 3)
Quarter: 2018Q2

REPORT INFORMATION
  Report Type: Report from Study
  Country: IL (occurrence: IL)
  Receive Date: 20180507
  Receipt Date: 20180530
  Transmission Date: 20180711
  Serious: Yes (Hospitalization)
  Sender: FDA-Public Use
  Company Number: PHHO2017IL006576

PATIENT
  Age: 36 Year
  Sex: Male
  Weight: 84.6 kg

DRUGS (33)
  1. BLINDED DABRAFENIB [Suspect]
     Active Substance: DABRAFENIB
     Indication: METASTATIC MALIGNANT MELANOMA
     Dosage: CODE NOT BROKEN
     Route: 042
     Dates: start: 20170222, end: 20170222
  2. DABRAFENIB [Suspect]
     Active Substance: DABRAFENIB
     Dosage: 100 MG, QD
     Route: 048
     Dates: start: 20170403, end: 20170403
  3. DABRAFENIB [Suspect]
     Active Substance: DABRAFENIB
     Dosage: 75 MG, QD
     Route: 048
     Dates: start: 20170425, end: 20170425
  4. TRAMETINIB [Suspect]
     Active Substance: TRAMETINIB
     Dosage: 1 MG, QD
     Route: 048
     Dates: start: 20170421, end: 20170425
  5. ACAMOL [Concomitant]
     Active Substance: ACETAMINOPHEN
     Indication: PYREXIA
     Dosage: UNK
     Route: 065
     Dates: start: 20170331
  6. BLINDED MK-3475 [Suspect]
     Active Substance: LAMBROLIZUMAB
     Indication: METASTATIC MALIGNANT MELANOMA
     Dosage: CODE NOT BROKEN
     Route: 042
     Dates: start: 20170222, end: 20170222
  7. DABRAFENIB [Suspect]
     Active Substance: DABRAFENIB
     Dosage: 150 MG, BID
     Route: 048
     Dates: start: 20170313, end: 20170315
  8. DABRAFENIB [Suspect]
     Active Substance: DABRAFENIB
     Dosage: 75 MG, QD
     Route: 048
     Dates: start: 20170515, end: 20170515
  9. OPTALGIN [Concomitant]
     Active Substance: METAMIZOLE
     Indication: PYREXIA
     Dosage: UNK
     Route: 065
     Dates: start: 20170331
  10. BLINDED DABRAFENIB [Suspect]
     Active Substance: DABRAFENIB
     Dosage: CODE NOT BROKEN
     Route: 042
     Dates: start: 20170329, end: 20170329
  11. BLINDED NO TREATMENT RECEIVED [Suspect]
     Active Substance: INVESTIGATIONAL PRODUCT
     Dosage: CODE NOT BROKEN
     Route: 042
     Dates: start: 20170329, end: 20170329
  12. DABRAFENIB [Suspect]
     Active Substance: DABRAFENIB
     Indication: METASTATIC MALIGNANT MELANOMA
     Dosage: 150 MG, QD
     Route: 048
     Dates: start: 20170222, end: 20170222
  13. DABRAFENIB [Suspect]
     Active Substance: DABRAFENIB
     Dosage: 75 MG, QD
     Route: 048
     Dates: start: 20170420, end: 20170420
  14. BLINDED PLACEBO [Suspect]
     Active Substance: INVESTIGATIONAL PRODUCT
     Indication: METASTATIC MALIGNANT MELANOMA
     Dosage: CODE NOT BROKEN
     Route: 042
     Dates: start: 20170222, end: 20170222
  15. BLINDED PLACEBO [Suspect]
     Active Substance: INVESTIGATIONAL PRODUCT
     Dosage: CODE NOT BROKEN
     Route: 042
     Dates: start: 20170329, end: 20170329
  16. DABRAFENIB [Suspect]
     Active Substance: DABRAFENIB
     Dosage: 100 MG, QD
     Route: 048
     Dates: start: 20170329, end: 20170329
  17. TRAMETINIB [Suspect]
     Active Substance: TRAMETINIB
     Dosage: 1.5 MG, QD
     Route: 048
     Dates: start: 20170403, end: 20170403
  18. TRAMETINIB [Suspect]
     Active Substance: TRAMETINIB
     Dosage: 1 MG, QD
     Route: 048
     Dates: start: 20170427, end: 20170515
  19. ACAMOL [Concomitant]
     Active Substance: ACETAMINOPHEN
     Indication: PAIN
  20. BLINDED TRAMETINIB [Suspect]
     Active Substance: TRAMETINIB
     Dosage: CODE NOT BROKEN
     Route: 042
     Dates: start: 20170329, end: 20170329
  21. DABRAFENIB [Suspect]
     Active Substance: DABRAFENIB
     Dosage: 150 MG, QD
     Route: 048
     Dates: start: 20170312, end: 20170312
  22. DABRAFENIB [Suspect]
     Active Substance: DABRAFENIB
     Dosage: 75 MG, BID
     Route: 048
     Dates: start: 20170427, end: 20170514
  23. TRAMETINIB [Suspect]
     Active Substance: TRAMETINIB
     Indication: METASTATIC MALIGNANT MELANOMA
     Dosage: 2 MG, QD
     Route: 048
     Dates: start: 20170222, end: 20170222
  24. TRAMETINIB [Suspect]
     Active Substance: TRAMETINIB
     Dosage: 2 MG, QD
     Route: 048
     Dates: start: 20170223, end: 20170315
  25. AUGMENTIN [Concomitant]
     Active Substance: AMOXICILLIN\CLAVULANATE POTASSIUM
     Indication: PROPHYLAXIS
     Route: 065
  26. BLINDED NO TREATMENT RECEIVED [Suspect]
     Active Substance: INVESTIGATIONAL PRODUCT
     Indication: METASTATIC MALIGNANT MELANOMA
     Dosage: CODE NOT BROKEN
     Route: 042
     Dates: start: 20170222, end: 20170222
  27. BLINDED MK-3475 [Suspect]
     Active Substance: LAMBROLIZUMAB
     Dosage: CODE NOT BROKEN
     Route: 042
     Dates: start: 20170329, end: 20170329
  28. DABRAFENIB [Suspect]
     Active Substance: DABRAFENIB
     Dosage: 150 MG, BID
     Route: 048
     Dates: start: 20170223, end: 20170311
  29. MOXIPEN [Concomitant]
     Indication: PRODUCT USED FOR UNKNOWN INDICATION
     Dosage: 500 MG, UNK
     Route: 048
     Dates: start: 20170314, end: 20170316
  30. BLINDED TRAMETINIB [Suspect]
     Active Substance: TRAMETINIB
     Indication: METASTATIC MALIGNANT MELANOMA
     Dosage: CODE NOT BROKEN
     Route: 042
     Dates: start: 20170222, end: 20170222
  31. DABRAFENIB [Suspect]
     Active Substance: DABRAFENIB
     Dosage: 75 MG, BID
     Route: 048
     Dates: start: 20170421, end: 20170424
  32. NAXYN [Concomitant]
     Active Substance: NAPROXEN
     Indication: PYREXIA
     Dosage: 250 MG, UNK
     Route: 048
     Dates: start: 20170329
  33. OPTALGIN [Concomitant]
     Active Substance: METAMIZOLE
     Indication: PAIN

REACTIONS (2)
  - Drug-induced liver injury [Recovered/Resolved]
  - Uveitis [Recovered/Resolved]

NARRATIVE: CASE EVENT DATE: 20170316
